FAERS Safety Report 6114209-2 (Version None)
Quarter: 2009Q1

REPORT INFORMATION
  Report Type: 
  Country: None (occurrence: None)
  Receive Date: 20090312
  Receipt Date: 20080730
  Transmission Date: 20090719
  Serious: Yes (Hospitalization)
  Sender: FDA-Public Use
  Company Number: US-ABBOTT-08P-163-0467477-00

PATIENT
  Sex: Male
  Weight: 68.1 kg

DRUGS (6)
  1. DEPAKOTE [Suspect]
     Indication: EPILEPSY
     Dosage: 500 MG TID AND 250 MG DAILY
     Route: 048
     Dates: start: 20070101
  2. DEPAKOTE [Suspect]
     Indication: CEREBROVASCULAR ACCIDENT
  3. FENOFIBRATE [Concomitant]
     Indication: BLOOD CHOLESTEROL INCREASED
     Route: 048
  4. PAROXETINE HYDROCHLORIDE [Concomitant]
     Indication: DEPRESSION
     Route: 048
  5. WARFARIN SODIUM [Concomitant]
     Indication: CEREBROVASCULAR ACCIDENT
     Route: 048
     Dates: start: 20050101
  6. LEVETIRACETAM [Concomitant]
     Indication: CONVULSION
     Route: 048

REACTIONS (3)
  - CONVULSION [None]
  - DRUG INEFFECTIVE [None]
  - DRUG LEVEL DECREASED [None]
